FAERS Safety Report 12108669 (Version 1)
Quarter: 2016Q1

REPORT INFORMATION
  Report Type: Spontaneous
  Country: US (occurrence: None)
  Receive Date: 20160222
  Receipt Date: 20160222
  Transmission Date: 20160526
  Serious: Yes (Other)
  Sender: FDA-Public Use
  Company Number: None

PATIENT
  Age: 62 Year
  Sex: Female
  Weight: 74.39 kg

DRUGS (6)
  1. HRT [Concomitant]
     Active Substance: UNSPECIFIED INGREDIENT
  2. FISH OIL [Concomitant]
     Active Substance: FISH OIL
  3. MULTI-VITAMIN [Concomitant]
     Active Substance: .ALPHA.-TOCOPHEROL ACETATE, DL-\ASCORBIC ACID\CYANOCOBALAMIN\FLUORIDE ION\FOLIC ACID\NIACIN\PYRIDOXINE\RIBOFLAVIN\THIAMINE\VITAMIN A\VITAMIN D
  4. GLUCOSAMINE [Concomitant]
     Active Substance: GLUCOSAMINE
  5. LORATADINE. [Concomitant]
     Active Substance: LORATADINE
  6. SIMVASTATIN 20MG. LUPIN [Suspect]
     Active Substance: SIMVASTATIN
     Indication: TYPE IIA HYPERLIPIDAEMIA
     Dosage: 1 TAB EVERY EVENING  AT BEDTIME TAKEN BY MOUTH
     Route: 048
     Dates: start: 20150320, end: 20160205

REACTIONS (5)
  - Myalgia [None]
  - Burning sensation [None]
  - Alopecia [None]
  - Anxiety [None]
  - Muscular weakness [None]
